FAERS Safety Report 4923461-8 (Version None)
Quarter: 2006Q1

REPORT INFORMATION
  Report Type: 
  Country: None (occurrence: None)
  Receive Date: 20060221
  Receipt Date: 20060206
  Transmission Date: 20060701
  Serious: Yes (Other)
  Sender: FDA-Public Use
  Company Number: 2006018707

PATIENT
  Age: 59 Year
  Sex: Male
  Weight: 106.5953 kg

DRUGS (5)
  1. VIAGRA [Suspect]
     Indication: ERECTILE DYSFUNCTION
     Dosage: 100 MG AS NECESSARY  THREE YEARS AGO
  2. FISH OIL [Concomitant]
  3. ACETYLSALICYLIC ACID SRT [Concomitant]
  4. CENTRUM (MINERALS NOS, VITAMINS NOS) [Concomitant]
  5. ANTI-ASTHMATICS [Concomitant]

REACTIONS (6)
  - BLOOD CHOLESTEROL INCREASED [None]
  - CORONARY ARTERY OCCLUSION [None]
  - DRUG EFFECT DECREASED [None]
  - INSOMNIA [None]
  - MYOCARDIAL INFARCTION [None]
  - WEIGHT INCREASED [None]
